FAERS Safety Report 25861695 (Version 1)
Quarter: 2025Q3

REPORT INFORMATION
  Report Type: Spontaneous
  Country: GB (occurrence: GB)
  Receive Date: 20250930
  Receipt Date: 20250930
  Transmission Date: 20251020
  Serious: Yes (Other)
  Sender: AUROBINDO
  Company Number: GB-MHRA-MED-202509251021439150-QMWHJ

PATIENT
  Age: 29 Year
  Sex: Male

DRUGS (1)
  1. FINASTERIDE [Suspect]
     Active Substance: FINASTERIDE
     Indication: Alopecia
     Dosage: 1 MILLIGRAM, ONCE A DAY
     Route: 065
     Dates: end: 20250925

REACTIONS (2)
  - Erectile dysfunction [Not Recovered/Not Resolved]
  - Brain fog [Recovering/Resolving]

NARRATIVE: CASE EVENT DATE: 20250101
